FAERS Safety Report 5434307-6 (Version None)
Quarter: 2007Q3

REPORT INFORMATION
  Report Type: 
  Country: None (occurrence: None)
  Receive Date: 20070831
  Receipt Date: 20070822
  Transmission Date: 20080115
  Serious: Yes (Hospitalization)
  Sender: FDA-Public Use
  Company Number: PHHO2005DE09757

PATIENT
  Age: 73 Year
  Sex: Male
  Weight: 99 kg

DRUGS (3)
  1. SANDOSTATIN LAR [Suspect]
     Indication: DIABETIC RETINOPATHY
     Route: 030
     Dates: start: 20050519
  2. LORZAAR [Concomitant]
  3. PENTOXIFYLLINE [Concomitant]

REACTIONS (3)
  - CONCOMITANT DISEASE PROGRESSION [None]
  - DIABETIC FOOT [None]
  - PERIPHERAL VASCULAR DISORDER [None]
